FAERS Safety Report 8684963 (Version 2)
Quarter: 2012Q4

REPORT INFORMATION
  Report Type: 
  Country: US (occurrence: US)
  Receive Date: 20120726
  Receipt Date: 20120913
  Transmission Date: 20130627
  Serious: Yes (Other)
  Sender: FDA-Public Use
  Company Number: US-JNJFOC-20120708497

PATIENT
  Sex: Female
  Weight: 62.6 kg

DRUGS (5)
  1. REMICADE [Suspect]
     Indication: CROHN^S DISEASE
     Route: 042
     Dates: start: 20120705
  2. REMICADE [Suspect]
     Indication: CROHN^S DISEASE
     Dosage: started at least 5 years ago
     Route: 042
     Dates: end: 2012
  3. REMICADE [Suspect]
     Indication: RHEUMATOID ARTHRITIS
     Route: 042
     Dates: start: 20120705
  4. REMICADE [Suspect]
     Indication: RHEUMATOID ARTHRITIS
     Dosage: started at least 5 years ago
     Route: 042
     Dates: end: 2012
  5. METHOTREXATE [Suspect]
     Indication: RHEUMATOID ARTHRITIS
     Route: 065
     Dates: end: 2012

REACTIONS (4)
  - Hypertension [Not Recovered/Not Resolved]
  - Rheumatoid nodule [Recovered/Resolved]
  - Crohn^s disease [Not Recovered/Not Resolved]
  - Drug ineffective [Unknown]
